FAERS Safety Report 4559444-X (Version None)
Quarter: 2005Q1

REPORT INFORMATION
  Report Type: 
  Country: None (occurrence: None)
  Receive Date: 20050119
  Receipt Date: 20050112
  Transmission Date: 20050727
  Serious: Yes (Hospitalization)
  Sender: FDA-Public Use
  Company Number: CIP05000081

PATIENT
  Age: 78 Year
  Sex: Female

DRUGS (6)
  1. FURADANTIN [Suspect]
     Indication: URINARY TRACT INFECTION
     Dosage: 50 MG THREE TIMES DAILY, ORAL;  50 MG THREE TIMES DAILY, UNK
     Route: 048
     Dates: start: 20041208, end: 20041212
  2. FURADANTIN [Suspect]
     Indication: URINARY TRACT INFECTION
     Dosage: 50 MG THREE TIMES DAILY, ORAL;  50 MG THREE TIMES DAILY, UNK
     Route: 048
     Dates: start: 20030601
  3. VASTAREL (TRIMETAZIDINE HYDROCHLORIDE) [Concomitant]
  4. NATISPRAY (GLYCERYL TRINITRATE) [Concomitant]
  5. APROVEL (IRBESARTAN) [Concomitant]
  6. INFLUENZA VACCINE (INFLUENZA VACCINE) [Concomitant]

REACTIONS (3)
  - HENOCH-SCHONLEIN PURPURA [None]
  - PETECHIAE [None]
  - PLATELET COUNT DECREASED [None]
